FAERS Safety Report 8192961-2 (Version None)
Quarter: 2012Q1

REPORT INFORMATION
  Report Type: 
  Country: None (occurrence: None)
  Receive Date: 20120308
  Receipt Date: 20120228
  Transmission Date: 20120608
  Serious: Yes (Death)
  Sender: FDA-Public Use
  Company Number: DE-BRISTOL-MYERS SQUIBB COMPANY-16369670

PATIENT
  Age: 45 Year
  Sex: Female
  Weight: 82 kg

DRUGS (8)
  1. METRONIDAZOLE [Concomitant]
     Indication: INFECTION
     Dates: start: 20111015, end: 20111017
  2. VANCOMYCIN [Concomitant]
     Indication: INFECTION
     Dates: start: 20111013, end: 20111017
  3. GRANISETRON HYDROCHLORIDE [Concomitant]
     Indication: VOMITING
     Dates: start: 20110930, end: 20111006
  4. CYTARABINE [Suspect]
     Indication: ACUTE MYELOID LEUKAEMIA
     Dates: start: 20110930, end: 20111007
  5. IDARUBICIN HCL [Suspect]
     Indication: ACUTE MYELOID LEUKAEMIA
     Dates: start: 20110930, end: 20111005
  6. MEROPENEM [Concomitant]
     Indication: INFECTION
     Dates: start: 20111012, end: 20111017
  7. ETOPOSIDE [Suspect]
     Indication: ACUTE MYELOID LEUKAEMIA
     Route: 065
     Dates: start: 20110930, end: 20111005
  8. TRETINOIN [Suspect]
     Indication: ACUTE MYELOID LEUKAEMIA
     Dosage: 06-08OCT2011,09OCT11-17OCT11(LESS THAN 80MG)
     Dates: start: 20111006, end: 20111017

REACTIONS (5)
  - SEPSIS [None]
  - PNEUMONIA BACTERIAL [None]
  - LOWER GASTROINTESTINAL HAEMORRHAGE [None]
  - NEUTROPENIA [None]
  - NEUTROPENIC COLITIS [None]
